FAERS Safety Report 25458230 (Version 1)
Quarter: 2025Q2

REPORT INFORMATION
  Report Type: Spontaneous
  Country: US (occurrence: None)
  Receive Date: 20250620
  Receipt Date: 20250620
  Transmission Date: 20250717
  Serious: Yes (Other)
  Sender: EMMAUS LIFE SCIENCES
  Company Number: US-Emmaus Medical, Inc.-EMM202410-000496

PATIENT
  Age: 50 Year
  Sex: Female

DRUGS (5)
  1. ENDARI [Suspect]
     Active Substance: GLUTAMINE
     Indication: Haemoglobin C disease
     Route: 048
     Dates: start: 202209
  2. ENDARI [Suspect]
     Active Substance: GLUTAMINE
     Route: 048
     Dates: start: 202406, end: 20240803
  3. ENDARI [Suspect]
     Active Substance: GLUTAMINE
     Route: 048
     Dates: start: 2024
  4. ENDARI [Suspect]
     Active Substance: GLUTAMINE
     Route: 048
     Dates: start: 2024
  5. FAMOTIDINE [Concomitant]
     Active Substance: FAMOTIDINE
     Indication: Product used for unknown indication
     Route: 065

REACTIONS (4)
  - Sickle cell anaemia with crisis [Unknown]
  - Abdominal discomfort [Unknown]
  - Dyspepsia [Not Recovered/Not Resolved]
  - Constipation [Not Recovered/Not Resolved]

NARRATIVE: CASE EVENT DATE: 20240601
